FAERS Safety Report 23073601 (Version 1)
Quarter: 2023Q4

REPORT INFORMATION
  Report Type: Spontaneous
  Country: US (occurrence: US)
  Receive Date: 20231017
  Receipt Date: 20231017
  Transmission Date: 20240109
  Serious: No
  Sender: FDA-Public Use
  Company Number: US-APOTEX-2023AP012159

PATIENT

DRUGS (1)
  1. OFLOXACIN OTIC [Suspect]
     Active Substance: OFLOXACIN
     Indication: Product used for unknown indication
     Dosage: 1 DROP IN THE RIGHT EYE 4 TIMES A DAY FOR 7 DAYS
     Route: 047

REACTIONS (2)
  - Incorrect route of product administration [Unknown]
  - No adverse event [Unknown]
